FAERS Safety Report 8930665 (Version 1)
Quarter: 2012Q4

REPORT INFORMATION
  Report Type: 
  Country: IT (occurrence: IT)
  Receive Date: 20121128
  Receipt Date: 20121128
  Transmission Date: 20130627
  Serious: Yes (Other)
  Sender: FDA-Public Use
  Company Number: IT-BRISTOL-MYERS SQUIBB COMPANY-17143777

PATIENT
  Age: 28 Year
  Sex: Male

DRUGS (1)
  1. REYATAZ [Suspect]

REACTIONS (2)
  - Cholelithiasis [Unknown]
  - Renal colic [Unknown]
